FAERS Safety Report 7342752-7 (Version None)
Quarter: 2011Q1

REPORT INFORMATION
  Report Type: 
  Country: None (occurrence: None)
  Receive Date: 20110310
  Receipt Date: 20110228
  Transmission Date: 20110831
  Serious: Yes (Other)
  Sender: FDA-Public Use
  Company Number: JP-SANOFI-AVENTIS-2011SA003818

PATIENT
  Age: 53 Year
  Sex: Male
  Weight: 85 kg

DRUGS (9)
  1. ELPLAT [Suspect]
     Indication: RECTAL CANCER
     Route: 041
     Dates: start: 20101214, end: 20101214
  2. 5-FU [Suspect]
     Indication: RECTAL CANCER
     Route: 040
     Dates: start: 20101214, end: 20101214
  3. GOSHAJINKIGAN [Concomitant]
     Indication: NEUROPATHY PERIPHERAL
     Route: 048
     Dates: start: 20101214, end: 20101221
  4. CALCIUM LEVOFOLINATE [Concomitant]
     Indication: RECTAL CANCER
     Route: 041
     Dates: start: 20101214, end: 20101214
  5. NAUZELIN [Concomitant]
     Indication: NAUSEA
     Route: 048
     Dates: start: 20101216, end: 20101221
  6. ALOXI [Concomitant]
     Indication: PREMEDICATION
     Route: 042
     Dates: start: 20101214, end: 20101214
  7. 5-FU [Suspect]
     Route: 041
     Dates: start: 20101214, end: 20101215
  8. ZANTAC [Concomitant]
     Indication: PREMEDICATION
     Route: 042
     Dates: start: 20101214, end: 20101214
  9. DEXAMETHASONE [Concomitant]
     Indication: PREMEDICATION
     Route: 041
     Dates: start: 20101214, end: 20101214

REACTIONS (2)
  - LEUKOENCEPHALOPATHY [None]
  - RENAL IMPAIRMENT [None]
